FAERS Safety Report 13483960 (Version 1)
Quarter: 2017Q2

REPORT INFORMATION
  Report Type: Spontaneous
  Country: US (occurrence: US)
  Receive Date: 20170425
  Receipt Date: 20170425
  Transmission Date: 20170830
  Serious: Yes (Other)
  Sender: FDA-Public Use
  Company Number: None

PATIENT
  Age: 73 Year
  Sex: Male
  Weight: 84.3 kg

DRUGS (1)
  1. OXALIPLATIN. [Suspect]
     Active Substance: OXALIPLATIN
     Indication: COLON CANCER METASTATIC
     Dosage: ?          OTHER FREQUENCY:EVERY 14 DAYS;?
     Route: 042
     Dates: start: 20160210, end: 20170419

REACTIONS (8)
  - Infusion related reaction [None]
  - Chest pain [None]
  - Rash [None]
  - Flushing [None]
  - Pruritus [None]
  - Cough [None]
  - Rash erythematous [None]
  - Swelling face [None]

NARRATIVE: CASE EVENT DATE: 20170419
